FAERS Safety Report 5864366-8 (Version None)
Quarter: 2008Q3

REPORT INFORMATION
  Report Type: 
  Country: None (occurrence: None)
  Receive Date: 20080829
  Receipt Date: 20080619
  Transmission Date: 20090109
  Serious: No
  Sender: FDA-Public Use
  Company Number: US-ABBOTT-08P-163-0458399-00

PATIENT
  Sex: Male

DRUGS (7)
  1. SIMCOR [Suspect]
     Indication: BLOOD CHOLESTEROL INCREASED
     Dosage: 1000/20MG
     Route: 048
     Dates: start: 20080601
  2. BACTRIM [Suspect]
     Indication: PROSTATE INFECTION
     Route: 048
     Dates: start: 20080601
  3. ALFUZOSIN HCL [Concomitant]
     Indication: PROSTATIC DISORDER
     Route: 048
  4. ALLOPURINOL [Concomitant]
     Indication: GOUT
     Route: 048
  5. METOPROLOL SUCCINATE [Concomitant]
     Indication: DRUG USE FOR UNKNOWN INDICATION
     Route: 048
  6. ACETYLSALICYLIC ACID SRT [Concomitant]
     Indication: DRUG USE FOR UNKNOWN INDICATION
     Route: 048
  7. FISH OIL [Concomitant]
     Indication: DRUG USE FOR UNKNOWN INDICATION
     Route: 048

REACTIONS (2)
  - PARAESTHESIA [None]
  - PRURITUS [None]
